FAERS Safety Report 9409212 (Version 1)
Quarter: 2013Q3

REPORT INFORMATION
  Report Type: Report from Study
  Country: FR (occurrence: FR)
  Receive Date: 20130719
  Receipt Date: 20130719
  Transmission Date: 20140515
  Serious: Yes (Death, Life-Threatening)
  Sender: FDA-Public Use
  Company Number: FR-ROCHE-625923

PATIENT
  Sex: 0

DRUGS (6)
  1. RITUXIMAB [Suspect]
     Indication: B-CELL LYMPHOMA
     Dosage: DOSE; 6 INFUSIONS
     Route: 065
  2. INTERFERON ALFA-2A [Suspect]
     Indication: B-CELL LYMPHOMA
     Dosage: REGIMEN; DURING 18 MONTHS 3 TIMES A WEEK (UNITS: MU)
     Route: 058
  3. CYCLOPHOSPHAMIDE [Suspect]
     Indication: B-CELL LYMPHOMA
     Dosage: ON DAY 1
     Route: 042
  4. DOXORUBICIN [Suspect]
     Indication: B-CELL LYMPHOMA
     Dosage: ON DAY 1
     Route: 042
  5. ETOPOSIDE [Suspect]
     Indication: B-CELL LYMPHOMA
     Dosage: ON DAY 1
     Route: 042
  6. PREDNISOLONE [Suspect]
     Indication: B-CELL LYMPHOMA
     Dosage: ON DAY 1 TO DAY 5
     Route: 048

REACTIONS (8)
  - Death [Fatal]
  - B-cell lymphoma [Fatal]
  - Neutropenia [Unknown]
  - Anaemia [Unknown]
  - Thrombocytopenia [Unknown]
  - Pyrexia [Unknown]
  - Infection [Unknown]
  - Cardiotoxicity [Unknown]
